FAERS Safety Report 8042816-9 (Version None)
Quarter: 2012Q1

REPORT INFORMATION
  Report Type: 
  Country: None (occurrence: None)
  Receive Date: 20120112
  Receipt Date: 20120105
  Transmission Date: 20120608
  Serious: Yes (Death, Life-Threatening)
  Sender: FDA-Public Use
  Company Number: CA-ROCHE-1017259

PATIENT
  Sex: Male
  Weight: 74.91 kg

DRUGS (3)
  1. HYDROMORPHONE HCL [Concomitant]
     Dates: end: 20111103
  2. XELODA [Suspect]
     Indication: MALIGNANT NEOPLASM OF AMPULLA OF VATER
     Route: 048
     Dates: start: 20110601, end: 20110916
  3. XELODA [Suspect]
     Indication: HEPATIC NEOPLASM MALIGNANT

REACTIONS (2)
  - DRUG EFFECT DECREASED [None]
  - DISEASE PROGRESSION [None]
